FAERS Safety Report 16746938 (Version 1)
Quarter: 2019Q3

REPORT INFORMATION
  Report Type: Spontaneous
  Country: US (occurrence: US)
  Receive Date: 20190827
  Receipt Date: 20190827
  Transmission Date: 20191005
  Serious: No
  Sender: FDA-Public Use
  Company Number: US-SA-2019SA235818

PATIENT
  Sex: Female

DRUGS (2)
  1. LIPITOR [Concomitant]
     Active Substance: ATORVASTATIN CALCIUM
     Dosage: 40 MG
  2. PLAVIX [Suspect]
     Active Substance: CLOPIDOGREL BISULFATE
     Dosage: 75 MG, QD
     Route: 048
     Dates: start: 2017

REACTIONS (3)
  - Parosmia [Unknown]
  - Product taste abnormal [Unknown]
  - Hyperchlorhydria [Unknown]
